FAERS Safety Report 13894671 (Version 1)
Quarter: 2017Q3

REPORT INFORMATION
  Report Type: Spontaneous
  Country: US (occurrence: US)
  Receive Date: 20170817
  Receipt Date: 20170817
  Transmission Date: 20171127
  Serious: Yes (Life-Threatening, Hospitalization, Disabling, Other)
  Sender: FDA-Public Use
  Company Number: None

PATIENT
  Age: 71 Year
  Sex: Female
  Weight: 67.5 kg

DRUGS (10)
  1. AMIODORONE [Suspect]
     Active Substance: AMIODARONE
     Indication: VENTRICULAR TACHYCARDIA
     Dates: start: 20150211, end: 20150503
  2. SINUS MEDS VITAMINS [Concomitant]
  3. QUINAPRIL. [Concomitant]
     Active Substance: QUINAPRIL
  4. CARVEDILOL. [Concomitant]
     Active Substance: CARVEDILOL
  5. BABY ASPIRIN [Concomitant]
     Active Substance: ASPIRIN
  6. STEROID INHALER ANNUITY [Concomitant]
  7. POTASSIUM [Concomitant]
     Active Substance: POTASSIUM
  8. OXYGEN. [Concomitant]
     Active Substance: OXYGEN
  9. HYDROCHLOROTHIAZIDE. [Concomitant]
     Active Substance: HYDROCHLOROTHIAZIDE
  10. CLONAZEPAM. [Concomitant]
     Active Substance: CLONAZEPAM

REACTIONS (3)
  - Pulmonary toxicity [None]
  - Immunodeficiency [None]
  - Respiratory disorder [None]

NARRATIVE: CASE EVENT DATE: 20150211
